FAERS Safety Report 11543687 (Version 1)
Quarter: 2015Q3

REPORT INFORMATION
  Report Type: Spontaneous
  Country: US (occurrence: US)
  Receive Date: 20150924
  Receipt Date: 20150924
  Transmission Date: 20151125
  Serious: No
  Sender: FDA-Public Use
  Company Number: US-009507513-1509USA010775

PATIENT
  Age: 58 Year
  Sex: Female

DRUGS (2)
  1. RAGWITEK [Suspect]
     Active Substance: AMBROSIA ARTEMISIIFOLIA POLLEN
     Indication: RHINITIS ALLERGIC
     Dosage: ONE TABLET PER DAY
     Route: 060
     Dates: start: 20150910, end: 20150918
  2. CORTICOSTEROIDS (UNSPECIFIED) [Concomitant]
     Active Substance: UNSPECIFIED INGREDIENT
     Route: 045

REACTIONS (3)
  - Nasal congestion [Unknown]
  - Upper-airway cough syndrome [Unknown]
  - Headache [Unknown]

NARRATIVE: CASE EVENT DATE: 20150914
